FAERS Safety Report 23348204 (Version 1)
Quarter: 2023Q4

REPORT INFORMATION
  Report Type: Other
  Country: KR (occurrence: KR)
  Receive Date: 20231228
  Receipt Date: 20231228
  Transmission Date: 20240110
  Serious: Yes (Other)
  Sender: FDA-Public Use
  Company Number: KR-ASTELLAS-2023US038811

PATIENT
  Sex: Male
  Weight: 60.45 kg

DRUGS (1)
  1. MIRABEGRON [Suspect]
     Active Substance: MIRABEGRON
     Indication: Chronic obstructive pulmonary disease
     Route: 065
     Dates: start: 20210715, end: 20210715

REACTIONS (2)
  - Arrhythmia [Recovered/Resolved]
  - Product use in unapproved indication [Unknown]

NARRATIVE: CASE EVENT DATE: 20210715
